FAERS Safety Report 8727759 (Version 5)
Quarter: 2013Q2

REPORT INFORMATION
  Report Type: Spontaneous
  Country: US (occurrence: US)
  Receive Date: 20120816
  Receipt Date: 20130419
  Transmission Date: 20140414
  Serious: Yes (Hospitalization)
  Sender: FDA-Public Use
  Company Number: US-B.I. PHARMACEUTICALS,INC./RIDGEFIELD-2012-BP-18726BP

PATIENT
  Age: 71 Year
  Sex: Female
  Weight: 77.11 kg

DRUGS (14)
  1. PRADAXA [Suspect]
     Indication: ANTICOAGULANT THERAPY
     Dates: start: 20110811, end: 20111227
  2. PRADAXA [Suspect]
     Indication: ATRIAL FIBRILLATION
  3. MOBIC [Concomitant]
  4. CRESTOR [Concomitant]
  5. POTASSIUM [Concomitant]
  6. LASIX [Concomitant]
  7. METFORMIN [Concomitant]
  8. LISINOPRIL [Concomitant]
  9. NIASPAN [Concomitant]
  10. SINGULAIR [Concomitant]
  11. ADVAIR [Concomitant]
  12. REQUIP [Concomitant]
  13. HYDROCODONE [Concomitant]
  14. HALCION [Concomitant]

REACTIONS (1)
  - Rectal haemorrhage [Recovered/Resolved]
